FAERS Safety Report 8446440-5 (Version None)
Quarter: 2012Q2

REPORT INFORMATION
  Report Type: 
  Country: None (occurrence: None)
  Receive Date: 20120618
  Receipt Date: 20120323
  Transmission Date: 20120825
  Serious: No
  Sender: FDA-Public Use
  Company Number: US-TEVA-329948USA

PATIENT
  Sex: Female

DRUGS (1)
  1. ACTIQ [Suspect]
     Route: 002

REACTIONS (1)
  - STRESS [None]
